FAERS Safety Report 7026379-2 (Version None)
Quarter: 2010Q4

REPORT INFORMATION
  Report Type: 
  Country: None (occurrence: None)
  Receive Date: 20101004
  Receipt Date: 20100922
  Transmission Date: 20110411
  Serious: Yes (Other)
  Sender: FDA-Public Use
  Company Number: US-PFIZER INC-2010095388

PATIENT
  Sex: Female
  Weight: 65.76 kg

DRUGS (6)
  1. LYRICA [Suspect]
     Indication: FIBROMYALGIA
     Dosage: 75 MG, 2X/DAY
     Route: 048
     Dates: start: 20100728, end: 20100806
  2. AMBIEN [Concomitant]
     Indication: INSOMNIA
     Dosage: UNK
  3. ORENCIA [Concomitant]
     Dosage: UNK
  4. METHOTREXATE [Concomitant]
     Dosage: UNK
  5. FOLIC ACID [Concomitant]
     Dosage: UNK
  6. VITAMIN B-12 [Concomitant]
     Dosage: UNK

REACTIONS (3)
  - CELLULITIS [None]
  - JOINT SWELLING [None]
  - LIMB INJURY [None]
